FAERS Safety Report 23804494 (Version 4)
Quarter: 2024Q3

REPORT INFORMATION
  Report Type: Report from Study
  Country: US (occurrence: US)
  Receive Date: 20240501
  Receipt Date: 20240710
  Transmission Date: 20241017
  Serious: No
  Sender: ALEXION PHARMACEUTICALS
  Company Number: US-AstraZeneca-CH-00613795A

PATIENT
  Sex: Male

DRUGS (1)
  1. STRENSIQ [Suspect]
     Active Substance: ASFOTASE ALFA
     Indication: Product used for unknown indication
     Dosage: UNK
     Route: 065

REACTIONS (10)
  - Influenza [Unknown]
  - Gait inability [Unknown]
  - Tooth loss [Unknown]
  - Blood alkaline phosphatase decreased [Unknown]
  - Vitamin B6 increased [Unknown]
  - Hand fracture [Not Recovered/Not Resolved]
  - Foot fracture [Unknown]
  - Back pain [Unknown]
  - Pain in extremity [Unknown]
  - COVID-19 [Unknown]
